FAERS Safety Report 11117760 (Version 2)
Quarter: 2015Q2

REPORT INFORMATION
  Report Type: Spontaneous
  Country: US (occurrence: US)
  Receive Date: 20150518
  Receipt Date: 20150615
  Transmission Date: 20150821
  Serious: No
  Sender: FDA-Public Use
  Company Number: US-ELI_LILLY_AND_COMPANY-US201505000962

PATIENT
  Age: 68 Year
  Sex: Female
  Weight: 128 kg

DRUGS (1)
  1. FORTEO [Suspect]
     Active Substance: TERIPARATIDE
     Indication: PRODUCT USED FOR UNKNOWN INDICATION
     Dosage: 20 UG, QD
     Route: 058
     Dates: start: 20150326, end: 20150417

REACTIONS (4)
  - Blood urine present [Recovered/Resolved]
  - Nephrolithiasis [Unknown]
  - Crystal urine present [Unknown]
  - Haematuria [Unknown]

NARRATIVE: CASE EVENT DATE: 20150416
